FAERS Safety Report 21714534 (Version 1)
Quarter: 2022Q4

REPORT INFORMATION
  Report Type: Spontaneous
  Country: US (occurrence: None)
  Receive Date: 20221211
  Receipt Date: 20221211
  Transmission Date: 20230113
  Serious: Yes (Other)
  Sender: FDA-Public Use
  Company Number: None

PATIENT
  Age: 35 Year
  Sex: Female
  Weight: 55.8 kg

DRUGS (1)
  1. BENZONATATE [Suspect]
     Active Substance: BENZONATATE
     Indication: Cough
     Dosage: OTHER QUANTITY : 21 CAPSULE(S);?FREQUENCY : 3 TIMES A DAY;?
     Route: 048
     Dates: start: 20221210, end: 20221211

REACTIONS (5)
  - Dizziness [None]
  - Blindness [None]
  - Hypoaesthesia [None]
  - Hypoaesthesia oral [None]
  - Headache [None]

NARRATIVE: CASE EVENT DATE: 20221211
